FAERS Safety Report 9161666 (Version 2)
Quarter: 2013Q1

REPORT INFORMATION
  Report Type: Spontaneous
  Country: SG (occurrence: SG)
  Receive Date: 20130314
  Receipt Date: 20130328
  Transmission Date: 20140127
  Serious: Yes (Other)
  Sender: FDA-Public Use
  Company Number: SG-AMGEN-SGPSP2013017480

PATIENT
  Age: 93 Year
  Sex: Female

DRUGS (7)
  1. PROLIA [Suspect]
     Indication: BONE LOSS
     Dosage: 60 MG/ML, Q6MO
     Dates: start: 20130227
  2. CALCIUM + VITAMIN D3 [Concomitant]
     Route: 065
  3. VITAMIN D /00107901/ [Concomitant]
     Route: 065
  4. ULTRACET [Concomitant]
     Dosage: 325MG PER DAY
     Route: 065
  5. LYRICA [Concomitant]
     Dosage: 75MG PER DAY
     Route: 065
  6. CAVIT D3 [Concomitant]
     Route: 065
  7. VITAMIN D [Concomitant]
     Route: 065

REACTIONS (1)
  - Local swelling [Unknown]
